FAERS Safety Report 7283599-X (Version None)
Quarter: 2011Q1

REPORT INFORMATION
  Report Type: 
  Country: None (occurrence: None)
  Receive Date: 20110209
  Receipt Date: 20110204
  Transmission Date: 20110831
  Serious: Yes (Hospitalization, Congenital Anomaly)
  Sender: FDA-Public Use
  Company Number: A0912537A

PATIENT
  Sex: Female

DRUGS (5)
  1. PAXIL [Suspect]
     Indication: DEPRESSION
     Dosage: 20MG PER DAY
     Route: 064
     Dates: start: 20050101, end: 20050101
  2. PROZAC [Concomitant]
     Route: 064
  3. KLOR-CON [Concomitant]
     Route: 064
  4. PRENATAL VITAMINS [Concomitant]
     Route: 064
  5. PEPCID [Concomitant]
     Route: 064

REACTIONS (8)
  - HYDROCEPHALUS [None]
  - CONGENITAL FOOT MALFORMATION [None]
  - SPINA BIFIDA [None]
  - NEUROGENIC BLADDER [None]
  - MENINGOMYELOCELE [None]
  - TALIPES [None]
  - ARNOLD-CHIARI MALFORMATION [None]
  - DRUG EXPOSURE DURING PREGNANCY [None]
